FAERS Safety Report 19457901 (Version 1)
Quarter: 2021Q2

REPORT INFORMATION
  Report Type: Spontaneous
  Country: US (occurrence: US)
  Receive Date: 20210624
  Receipt Date: 20210624
  Transmission Date: 20210717
  Serious: No
  Sender: FDA-Public Use
  Company Number: US-DECIPHERA PHARMACEUTICALS LLC-2021US000363

PATIENT
  Sex: Male
  Weight: 84.35 kg

DRUGS (2)
  1. COVID?19 VACCINE [Concomitant]
     Indication: COVID-19
     Dosage: UNK
     Route: 065
  2. QINLOCK [Suspect]
     Active Substance: RIPRETINIB
     Indication: NEOPLASM
     Dosage: 150 MILLIGRAM, QD
     Route: 048
     Dates: start: 20210501

REACTIONS (4)
  - Pain [Recovered/Resolved]
  - Pyrexia [Recovered/Resolved]
  - Oropharyngeal discomfort [Not Recovered/Not Resolved]
  - Tongue discomfort [Not Recovered/Not Resolved]

NARRATIVE: CASE EVENT DATE: 2021
